FAERS Safety Report 5102741-X (Version None)
Quarter: 2006Q3

REPORT INFORMATION
  Report Type: 
  Country: None (occurrence: None)
  Receive Date: 20060907
  Receipt Date: 20060824
  Transmission Date: 20061208
  Serious: Yes (Hospitalization, Other)
  Sender: FDA-Public Use
  Company Number: 2006AP000680

PATIENT
  Age: 63 Year
  Sex: Female

DRUGS (1)
  1. KETOCONAZOLE [Suspect]
     Indication: FUNGAL SKIN INFECTION
     Dosage: 200 MG; BID PO
     Route: 048
     Dates: start: 20040101, end: 20040101

REACTIONS (6)
  - ELECTROCARDIOGRAM QT CORRECTED INTERVAL PROLONGED [None]
  - ELECTROCARDIOGRAM QT PROLONGED [None]
  - FALL [None]
  - LOSS OF CONSCIOUSNESS [None]
  - TORSADE DE POINTES [None]
  - VENTRICULAR EXTRASYSTOLES [None]
